FAERS Safety Report 8332720-0 (Version None)
Quarter: 2012Q1

REPORT INFORMATION
  Report Type: 
  Country: None (occurrence: None)
  Receive Date: 20120327
  Receipt Date: 20100625
  Transmission Date: 20120608
  Serious: Yes (Hospitalization, Other)
  Sender: FDA-Public Use
  Company Number: PHHY2010US05647

PATIENT
  Age: 33 Year
  Sex: Female
  Weight: 105.9 kg

DRUGS (3)
  1. PRENATAL VITAMINS (ASCORBIC ACID, BIOTIN, MINERALS NOS, NICOTINIC ACID [Concomitant]
  2. GLEEVEC [Suspect]
     Indication: CHRONIC MYELOID LEUKAEMIA
     Dosage: 400 MG, QD, ORAL
     Route: 048
     Dates: start: 20090817, end: 20100609
  3. INTERFERON [Concomitant]

REACTIONS (8)
  - WHITE BLOOD CELL COUNT INCREASED [None]
  - BLAST CRISIS IN MYELOGENOUS LEUKAEMIA [None]
  - PERIPHERAL COLDNESS [None]
  - MYALGIA [None]
  - THERAPEUTIC RESPONSE DECREASED [None]
  - MUSCLE SPASMS [None]
  - NAUSEA [None]
  - FATIGUE [None]
